FAERS Safety Report 6879680-7 (Version None)
Quarter: 2010Q2

REPORT INFORMATION
  Report Type: 
  Country: None (occurrence: None)
  Receive Date: 20100625
  Receipt Date: 20100106
  Transmission Date: 20101027
  Serious: Yes (Other)
  Sender: FDA-Public Use
  Company Number: 2010002945

PATIENT
  Age: 62 Year
  Sex: Female
  Weight: 122.4 kg

DRUGS (2)
  1. ESTRING [Suspect]
     Indication: VULVOVAGINAL DRYNESS
     Dosage: 2 MG, VAGINAL
     Route: 067
     Dates: end: 20091231
  2. VIVELLE-DOT [Suspect]
     Dosage: TRANSDERMAL
     Route: 062

REACTIONS (1)
  - BREAST CANCER [None]
